FAERS Safety Report 6213018-3 (Version None)
Quarter: 2009Q2

REPORT INFORMATION
  Report Type: 
  Country: None (occurrence: None)
  Receive Date: 20090603
  Receipt Date: 20090526
  Transmission Date: 20091009
  Serious: Yes (Hospitalization)
  Sender: FDA-Public Use
  Company Number: DE-ABBOTT-09P-062-0576056-00

PATIENT
  Sex: Female

DRUGS (2)
  1. HUMIRA [Suspect]
     Indication: RHEUMATOID ARTHRITIS
     Route: 058
     Dates: start: 20071027, end: 20090415
  2. EYE DROPS [Concomitant]
     Indication: DRUG USE FOR UNKNOWN INDICATION
     Route: 061

REACTIONS (2)
  - BLOOD COUNT ABNORMAL [None]
  - RETINOPATHY [None]
